FAERS Safety Report 4718571-4 (Version None)
Quarter: 2005Q3

REPORT INFORMATION
  Report Type: 
  Country: None (occurrence: None)
  Receive Date: 20050720
  Receipt Date: 20050408
  Transmission Date: 20060218
  Serious: Yes (Other)
  Sender: FDA-Public Use
  Company Number: 2005UW07160

PATIENT
  Age: 22856 Day
  Sex: Male
  Weight: 78.2 kg

DRUGS (1)
  1. CRESTOR [Suspect]
     Indication: LIPIDS INCREASED
     Route: 048

REACTIONS (1)
  - GINGIVITIS [None]
